FAERS Safety Report 8488969-X (Version None)
Quarter: 2012Q3

REPORT INFORMATION
  Report Type: 
  Country: None (occurrence: None)
  Receive Date: 20120705
  Receipt Date: 20120621
  Transmission Date: 20120928
  Serious: Yes (Hospitalization)
  Sender: FDA-Public Use
  Company Number: FR-ROCHE-1074723

PATIENT
  Age: 70 Year
  Sex: Female

DRUGS (7)
  1. ACTEMRA [Suspect]
     Indication: RHEUMATOID ARTHRITIS
     Route: 042
     Dates: start: 20110127, end: 20120414
  2. EXFORGE [Concomitant]
     Indication: HYPERTENSION
     Route: 048
  3. CELIPROLOL [Concomitant]
     Indication: HYPERTENSION
     Route: 048
  4. CRESTOR [Concomitant]
     Indication: HYPERCHOLESTEROLAEMIA
     Route: 048
  5. DESLORATADINE [Concomitant]
     Route: 048
  6. ORCAL [Concomitant]
     Indication: OSTEOPOROSIS
     Route: 048
     Dates: start: 20050101
  7. ACETAMINOPHEN [Concomitant]

REACTIONS (2)
  - PRURIGO [None]
  - AMNESTIC DISORDER [None]
